FAERS Safety Report 7248479-4 (Version None)
Quarter: 2011Q1

REPORT INFORMATION
  Report Type: 
  Country: None (occurrence: None)
  Receive Date: 20110127
  Receipt Date: 20110118
  Transmission Date: 20110831
  Serious: Yes (Other)
  Sender: FDA-Public Use
  Company Number: US-TYCO HEALTHCARE/MALLINCKRODT-T201100080

PATIENT

DRUGS (3)
  1. DICLOFENAC SODIUM [Concomitant]
     Indication: ANTIINFLAMMATORY THERAPY
     Dosage: UNK
  2. OXYCODONE HCL AND ACETAMINOPHEN [Suspect]
     Indication: MUSCLE INJURY
     Dosage: ONLY TOOK 1 TAB
     Dates: start: 20110115, end: 20110115
  3. BACLOFEN [Concomitant]
     Indication: MUSCLE RELAXANT THERAPY
     Dosage: UNK

REACTIONS (5)
  - GAIT DISTURBANCE [None]
  - MUSCULAR WEAKNESS [None]
  - PARAESTHESIA [None]
  - DIZZINESS [None]
  - HYPERSOMNIA [None]
